FAERS Safety Report 9737349 (Version 2)
Quarter: 2014Q1

REPORT INFORMATION
  Report Type: Spontaneous
  Country: US (occurrence: US)
  Receive Date: 20131206
  Receipt Date: 20140110
  Transmission Date: 20141002
  Serious: Yes (Other)
  Sender: FDA-Public Use
  Company Number: US-BIOGENIDEC-2013BI098423

PATIENT
  Sex: Female
  Weight: 77 kg

DRUGS (8)
  1. TECFIDERA [Suspect]
     Indication: MULTIPLE SCLEROSIS
     Route: 048
     Dates: start: 201308
  2. TECFIDERA [Suspect]
     Indication: MULTIPLE SCLEROSIS
     Route: 048
  3. BACLOFEN [Concomitant]
  4. NUVIGIL [Concomitant]
  5. VITAMIN D [Concomitant]
  6. ASA [Concomitant]
  7. CALCIUM [Concomitant]
  8. COPAXONE KIT [Concomitant]

REACTIONS (6)
  - Hepatitis toxic [Unknown]
  - Pyrexia [Unknown]
  - Diarrhoea [Unknown]
  - Abdominal discomfort [Unknown]
  - Nausea [Unknown]
  - Hepatic enzyme increased [Unknown]
